FAERS Safety Report 5863208-4 (Version None)
Quarter: 2008Q3

REPORT INFORMATION
  Report Type: 
  Country: None (occurrence: None)
  Receive Date: 20080828
  Receipt Date: 20080820
  Transmission Date: 20090109
  Serious: Yes (Death)
  Sender: FDA-Public Use
  Company Number: JP-AVENTIS-200812657JP

PATIENT

DRUGS (2)
  1. TAXOTERE [Suspect]
     Dosage: DOSE: 60 MG
  2. TS-1 [Concomitant]

REACTIONS (3)
  - BONE MARROW FAILURE [None]
  - DIARRHOEA [None]
  - PYREXIA [None]
